FAERS Safety Report 6454890-1 (Version None)
Quarter: 2009Q4

REPORT INFORMATION
  Report Type: 
  Country: None (occurrence: None)
  Receive Date: 20091118
  Receipt Date: 20091105
  Transmission Date: 20100525
  Serious: Yes (Other)
  Sender: FDA-Public Use
  Company Number: 1000010121

PATIENT
  Sex: Female

DRUGS (3)
  1. ESCITALOPRAM [Suspect]
     Indication: DEPRESSION
     Dosage: ORAL
     Route: 048
     Dates: start: 20091023
  2. INFLUENZA VIRUS VACCINE [Suspect]
     Indication: PROPHYLAXIS
     Dates: start: 20091023, end: 20091023
  3. CANCER CHEMOTHERAPY [Concomitant]

REACTIONS (3)
  - DERMATITIS BULLOUS [None]
  - SCAB [None]
  - TOXIC SKIN ERUPTION [None]
